FAERS Safety Report 15198409 (Version 2)
Quarter: 2018Q3

REPORT INFORMATION
  Report Type: Report from Study
  Country: US (occurrence: US)
  Receive Date: 20180725
  Receipt Date: 20180731
  Transmission Date: 20181010
  Serious: Yes (Hospitalization)
  Sender: FDA-Public Use
  Company Number: PHHO2014US002552

PATIENT
  Age: 58 Year
  Sex: Male
  Weight: 86.17 kg

DRUGS (30)
  1. ZORTRESS [Suspect]
     Active Substance: EVEROLIMUS
     Dosage: 0.75 MG, BID
     Route: 048
     Dates: start: 20140508
  2. TACROLIMUS. [Suspect]
     Active Substance: TACROLIMUS
     Indication: RENAL TRANSPLANT
     Dosage: 1.5 MG, (1 MG AM AND 0.5 MG PM)
     Route: 048
     Dates: start: 20130926, end: 20131002
  3. NORVASC [Concomitant]
     Active Substance: AMLODIPINE BESYLATE
     Indication: HYPERTENSION
     Dosage: 10 MG, QD
     Route: 048
     Dates: start: 20110831
  4. AMOXICILLIN AND CLAVULANATE POTASSIUM [Concomitant]
     Active Substance: AMOXICILLIN\CLAVULANATE POTASSIUM
     Indication: PRODUCT USED FOR UNKNOWN INDICATION
     Dosage: 500/125 BID
     Route: 048
     Dates: start: 20140127
  5. CINNAMON. [Concomitant]
     Active Substance: CINNAMON
     Indication: HYPERLIPIDAEMIA
     Dosage: 500 MG, QD
     Route: 048
     Dates: start: 20131224
  6. AMIODARONE [Concomitant]
     Active Substance: AMIODARONE
     Indication: CARDIOVASCULAR EVENT PROPHYLAXIS
     Dosage: 200 MG, QD
     Route: 048
     Dates: start: 20140224
  7. HYDROCORTISONE. [Concomitant]
     Active Substance: HYDROCORTISONE
     Indication: PRODUCT USED FOR UNKNOWN INDICATION
     Dosage: ONE APPLICATION TOP TID
     Route: 061
  8. ZORTRESS [Suspect]
     Active Substance: EVEROLIMUS
     Dosage: 0.5 MG, BID
     Route: 048
     Dates: start: 20131122, end: 20131226
  9. TACROLIMUS. [Suspect]
     Active Substance: TACROLIMUS
     Dosage: 1.5 MG, QD  (1 MG AT MORNING AND 0.5MG AT EVENING)
     Route: 048
     Dates: start: 20140403
  10. SIMVASTATIN. [Concomitant]
     Active Substance: SIMVASTATIN
     Indication: HYPERLIPIDAEMIA
     Dosage: 20 MG, QD
     Route: 048
     Dates: start: 20130327
  11. FUROSEMIDE. [Concomitant]
     Active Substance: FUROSEMIDE
     Indication: OEDEMA
     Dosage: 80 MG, QD
     Route: 048
     Dates: start: 20131223
  12. GABAPENTIN. [Concomitant]
     Active Substance: GABAPENTIN
     Indication: NEUROPATHY PERIPHERAL
     Dosage: 100 MG, BID
     Route: 048
     Dates: start: 20120829
  13. LOPID [Concomitant]
     Active Substance: GEMFIBROZIL
     Indication: HYPERLIPIDAEMIA
     Dosage: 600 MG, BID
     Route: 048
     Dates: start: 20140225
  14. TACROLIMUS. [Suspect]
     Active Substance: TACROLIMUS
     Dosage: 0.5 MG, BID
     Route: 048
     Dates: start: 20140327, end: 20140402
  15. MAGNESIUM OXIDE. [Concomitant]
     Active Substance: MAGNESIUM OXIDE
     Indication: SUPPLEMENTATION THERAPY
     Dosage: 400 MG, BID
     Route: 048
     Dates: start: 20130401
  16. ZORTRESS [Suspect]
     Active Substance: EVEROLIMUS
     Indication: RENAL TRANSPLANT
     Dosage: 0.75 MG, BID
     Route: 048
     Dates: start: 20130926, end: 20131122
  17. MYFORTIC [Suspect]
     Active Substance: MYCOPHENOLATE SODIUM
     Indication: RENAL TRANSPLANT
     Dosage: 540 MG, BID
     Route: 048
     Dates: start: 20130317, end: 20141130
  18. CARVEDILOL. [Concomitant]
     Active Substance: CARVEDILOL
     Indication: HYPERTENSION
     Dosage: 25 MG, BID
     Route: 048
     Dates: start: 20131122
  19. CLONIDINE. [Concomitant]
     Active Substance: CLONIDINE
     Indication: HYPERTENSION
     Dosage: 0.3 MG, (0.2 MG AM AND 0.1 MG PM)
     Route: 048
     Dates: start: 20140303
  20. ASPIRIN. [Concomitant]
     Active Substance: ASPIRIN
     Indication: CARDIOVASCULAR EVENT PROPHYLAXIS
     Dosage: 81 MG, QD
     Route: 048
     Dates: start: 20130805
  21. FISH OIL [Concomitant]
     Active Substance: FISH OIL
     Indication: HYPERLIPIDAEMIA
     Dosage: 1200 MG, BID
     Route: 048
     Dates: start: 20131122
  22. AMARYL [Concomitant]
     Active Substance: GLIMEPIRIDE
     Indication: DIABETES MELLITUS
     Dosage: 2 MG, QD
     Route: 048
     Dates: start: 20140303
  23. VITAMIN D [Concomitant]
     Active Substance: CHOLECALCIFEROL
     Indication: SUPPLEMENTATION THERAPY
     Dosage: 2000 MG, QD
     Route: 048
     Dates: start: 20140929, end: 20141124
  24. ATARAX [Concomitant]
     Active Substance: HYDROXYZINE HYDROCHLORIDE
     Indication: PRODUCT USED FOR UNKNOWN INDICATION
     Dosage: 10 MG, PRN
     Route: 048
  25. TACROLIMUS. [Suspect]
     Active Substance: TACROLIMUS
     Dosage: 1.5 MG, (1 MG AM AND 0.5 MG PM)
     Route: 048
     Dates: start: 20140128, end: 20140327
  26. PREDNISONE. [Concomitant]
     Active Substance: PREDNISONE
     Indication: RENAL TRANSPLANT
     Dosage: 5 MG, QD
     Route: 048
     Dates: start: 20140324, end: 20141124
  27. HYDRALAZINE [Concomitant]
     Active Substance: HYDRALAZINE HYDROCHLORIDE
     Indication: HYPERTENSION
     Dosage: 50 MG, BID
     Route: 048
     Dates: start: 20131111
  28. ZORTRESS [Suspect]
     Active Substance: EVEROLIMUS
     Dosage: 1.25 MG, DAILY (0.5 MG MORNING, 0.75 MG EVEN)
     Route: 048
     Dates: start: 20131226, end: 20140507
  29. TACROLIMUS. [Suspect]
     Active Substance: TACROLIMUS
     Dosage: NO TREATMENT (AS PER STUDY ARM ASSIGNMENT)
     Route: 065
     Dates: start: 20131002, end: 20140128
  30. SODIUM BICARBONATE. [Concomitant]
     Active Substance: SODIUM BICARBONATE
     Indication: METABOLIC ACIDOSIS
     Dosage: 1300 MG, BID
     Route: 048
     Dates: start: 20141205

REACTIONS (3)
  - Tenosynovitis [Recovered/Resolved]
  - Acute kidney injury [Not Recovered/Not Resolved]
  - Kidney transplant rejection [Not Recovered/Not Resolved]

NARRATIVE: CASE EVENT DATE: 20140127
